FAERS Safety Report 7457593-X (Version None)
Quarter: 2011Q1

REPORT INFORMATION
  Report Type: 
  Country: None (occurrence: None)
  Receive Date: 20110302
  Receipt Date: 20101221
  Transmission Date: 20110831
  Serious: Yes (Hospitalization)
  Sender: FDA-Public Use
  Company Number: 163-21880-10082738

PATIENT
  Age: 78 Year
  Sex: Female

DRUGS (5)
  1. HYDROCHLOROTHIAZIDE [Concomitant]
  2. LISINOPRIL [Concomitant]
  3. BP RX (ANTIHYPERTENSIVES) [Concomitant]
  4. REVLIMID [Suspect]
     Indication: MULTIPLE MYELOMA
     Dosage: 25 MG, 1 IN 1 D, PO, 15 MG, FOR 21 DAYS, PO
     Route: 048
     Dates: start: 20100930
  5. REVLIMID [Suspect]
     Indication: MULTIPLE MYELOMA
     Dosage: 25 MG, 1 IN 1 D, PO, 15 MG, FOR 21 DAYS, PO
     Route: 048
     Dates: start: 20100721

REACTIONS (7)
  - DIARRHOEA [None]
  - DEHYDRATION [None]
  - LOSS OF CONSCIOUSNESS [None]
  - LOWER GASTROINTESTINAL HAEMORRHAGE [None]
  - ANAEMIA [None]
  - ADVERSE REACTION [None]
  - ASTHENIA [None]
